FAERS Safety Report 12061497 (Version 1)
Quarter: 2016Q1

REPORT INFORMATION
  Report Type: Spontaneous
  Country: US (occurrence: US)
  Receive Date: 20160210
  Receipt Date: 20160210
  Transmission Date: 20160526
  Serious: No
  Sender: FDA-Public Use
  Company Number: US-PFIZER INC-2016067804

PATIENT
  Age: 70 Year
  Sex: Female
  Weight: 84 kg

DRUGS (14)
  1. LYRICA [Suspect]
     Active Substance: PREGABALIN
     Indication: OSTEOARTHRITIS
  2. OMEPRAZOLE. [Suspect]
     Active Substance: OMEPRAZOLE
     Dosage: 20 MG, 2X/DAY
  3. METOPROLOL TARTRATE. [Suspect]
     Active Substance: METOPROLOL TARTRATE
     Dosage: 100 MG, 1X/DAY
  4. PENTAZOCINE/NALOXONE [Suspect]
     Active Substance: NALOXONE\PENTAZOCINE
     Dosage: 1 DF, AS NEEDED (TWICE A DAY)
  5. CLONAZEPAM. [Suspect]
     Active Substance: CLONAZEPAM
     Dosage: 1 MG, AS NEEDED, (TWICE A DAY)
  6. NEURONTIN [Concomitant]
     Active Substance: GABAPENTIN
     Dosage: UNK
  7. LYRICA [Suspect]
     Active Substance: PREGABALIN
     Indication: NEURALGIA
  8. CARISOPRODOL. [Suspect]
     Active Substance: CARISOPRODOL
     Dosage: 350 MG, 2X/DAY
  9. LISINOPRIL. [Suspect]
     Active Substance: LISINOPRIL
     Dosage: 20 MG, 1X/DAY
  10. LYRICA [Suspect]
     Active Substance: PREGABALIN
     Indication: FIBROMYALGIA
     Dosage: 50 MG, 3X/DAY
  11. LYRICA [Suspect]
     Active Substance: PREGABALIN
     Indication: INTERVERTEBRAL DISC PROTRUSION
  12. METFORMIN [Suspect]
     Active Substance: METFORMIN HYDROCHLORIDE
     Dosage: 1000 MG, 2X/DAY
  13. CRESTOR [Suspect]
     Active Substance: ROSUVASTATIN CALCIUM
     Dosage: 5 MG, 1X/DAY (10 MG TABLET BY BREAKING IN HALF)
  14. MIRTAZAPINE. [Suspect]
     Active Substance: MIRTAZAPINE
     Dosage: 30 MG, 1X/DAY

REACTIONS (7)
  - Spinal disorder [Recovered/Resolved]
  - Feeling abnormal [Recovered/Resolved]
  - Neuralgia [Recovered/Resolved]
  - Thinking abnormal [Recovered/Resolved]
  - Pain [Recovered/Resolved]
  - Exostosis [Recovered/Resolved]
  - Intentional product misuse [Unknown]
